FAERS Safety Report 5955956-2 (Version None)
Quarter: 2008Q4

REPORT INFORMATION
  Report Type: 
  Country: None (occurrence: None)
  Receive Date: 20081112
  Receipt Date: 20081103
  Transmission Date: 20090506
  Serious: Yes (Death)
  Sender: FDA-Public Use
  Company Number: 430077J08USA

PATIENT
  Age: 65 Year
  Sex: Male

DRUGS (9)
  1. NOVANTRONE [Suspect]
     Indication: MULTIPLE SCLEROSIS
     Dates: start: 20041104
  2. REBIF [Suspect]
     Indication: MULTIPLE SCLEROSIS
     Dosage: 44 MCG, 3 IN 1 WEEKS, SUBCUTANEOUS
     Route: 058
     Dates: start: 20031029, end: 20080918
  3. LOSARTAN POTASSIUM [Concomitant]
  4. PAROXETINE HCL [Concomitant]
  5. PROVIGIL [Concomitant]
  6. LIPITOR [Concomitant]
  7. DONEPEZIL HCL [Concomitant]
  8. NITROFURANTOIN (NITROFURANTOTN) [Concomitant]
  9. OXYBUTYNIN CHLORIDE [Concomitant]

REACTIONS (4)
  - CARDIOMEGALY [None]
  - HEAT ILLNESS [None]
  - HYPERTHERMIA [None]
  - IMMOBILE [None]
